FAERS Safety Report 16726065 (Version 7)
Quarter: 2019Q4

REPORT INFORMATION
  Report Type: Report from Study
  Country: BR (occurrence: BR)
  Receive Date: 20190821
  Receipt Date: 20191204
  Transmission Date: 20200122
  Serious: Yes (Other)
  Sender: FDA-Public Use
  Company Number: PHHY2019BR192908

PATIENT
  Age: 58 Year
  Sex: Female
  Weight: 83 kg

DRUGS (16)
  1. OMEPRAZOLE. [Suspect]
     Active Substance: OMEPRAZOLE
     Indication: PRODUCT USED FOR UNKNOWN INDICATION
     Dosage: 1 DF, QD
     Route: 065
  2. FUROSEMIDE. [Concomitant]
     Active Substance: FUROSEMIDE
     Indication: PRODUCT USED FOR UNKNOWN INDICATION
     Dosage: 4 DF, BID (2 IN THE MORNING AND 2 IN THE AFTERNOON)
     Route: 065
  3. SUSTRATE [Concomitant]
     Active Substance: PROPATYL NITRATE
     Indication: PRODUCT USED FOR UNKNOWN INDICATION
     Route: 065
  4. INSULIN [Concomitant]
     Active Substance: INSULIN NOS
     Indication: PRODUCT USED FOR UNKNOWN INDICATION
     Dosage: UNK
     Route: 065
  5. SIMVASTATIN. [Suspect]
     Active Substance: SIMVASTATIN
     Indication: PRODUCT USED FOR UNKNOWN INDICATION
     Dosage: 1 DF, QD
     Route: 065
  6. APRESOLIN [Suspect]
     Active Substance: HYDRALAZINE HYDROCHLORIDE
     Indication: PRODUCT USED FOR UNKNOWN INDICATION
     Dosage: 50 MG, UNK
     Route: 065
  7. METFORMIN [Suspect]
     Active Substance: METFORMIN HYDROCHLORIDE
     Indication: DIABETES MELLITUS
     Dosage: 2 DF, BID (LUNCH AND DINNER)
     Route: 065
  8. AAS [Concomitant]
     Active Substance: ASPIRIN
     Indication: PRODUCT USED FOR UNKNOWN INDICATION
     Dosage: 1 DF, QD
     Route: 065
  9. PROCORALAN [Concomitant]
     Active Substance: IVABRADINE
     Indication: PRODUCT USED FOR UNKNOWN INDICATION
     Dosage: 2 DF, UNK (IN THE MORNING AND AT NIGHT)
     Route: 048
  10. FORASEQ [Suspect]
     Active Substance: BUDESONIDE\FORMOTEROL FUMARATE
     Indication: PRODUCT USED FOR UNKNOWN INDICATION
     Dosage: UNK
     Route: 065
  11. HYDRALAZINE [Concomitant]
     Active Substance: HYDRALAZINE HYDROCHLORIDE
     Indication: PRODUCT USED FOR UNKNOWN INDICATION
     Dosage: 0.5 DF, BID
     Route: 065
  12. HYDROCHLOROTHIAZIDE. [Concomitant]
     Active Substance: HYDROCHLOROTHIAZIDE
     Indication: PRODUCT USED FOR UNKNOWN INDICATION
     Dosage: 1 DF, QD
     Route: 065
  13. GLICAZIDA [Concomitant]
     Active Substance: GLICLAZIDE
     Indication: PRODUCT USED FOR UNKNOWN INDICATION
     Dosage: 2 DF, QD
     Route: 065
  14. ENTRESTO [Suspect]
     Active Substance: SACUBITRIL\VALSARTAN
     Indication: CARDIAC FAILURE
     Dosage: 2 DF (SACUBITRIL 49 MG/ VALSARTAN 51 MG), BID
     Route: 048
     Dates: start: 201808
  15. ENTRESTO [Suspect]
     Active Substance: SACUBITRIL\VALSARTAN
     Dosage: 2 DF (SACUBITRIL 97 MG/ VALSARTAN 103 MG), BID(IN THE MORNING AND AT NIGHT)
     Route: 048
  16. NPH INSULIN [Concomitant]
     Active Substance: INSULIN BEEF
     Indication: PRODUCT USED FOR UNKNOWN INDICATION
     Dosage: 50 IU, BID
     Route: 058

REACTIONS (33)
  - Flatulence [Unknown]
  - Pleurisy [Unknown]
  - Painful respiration [Unknown]
  - Dysphonia [Unknown]
  - Asthenia [Unknown]
  - Vomiting [Not Recovered/Not Resolved]
  - Myocardial infarction [Unknown]
  - Oedema [Unknown]
  - Heart rate increased [Unknown]
  - Swelling [Unknown]
  - Urinary incontinence [Unknown]
  - Drug ineffective [Unknown]
  - Dizziness [Not Recovered/Not Resolved]
  - Head discomfort [Unknown]
  - Feeling abnormal [Unknown]
  - Diarrhoea [Not Recovered/Not Resolved]
  - Dyspnoea [Unknown]
  - Abdominal distension [Unknown]
  - Peripheral swelling [Unknown]
  - Malaise [Unknown]
  - Hypotension [Unknown]
  - Skin haemorrhage [Unknown]
  - Oxygen saturation decreased [Unknown]
  - Hypertension [Unknown]
  - Fatigue [Unknown]
  - Nausea [Unknown]
  - Pain [Unknown]
  - Skin mass [Unknown]
  - Cough [Not Recovered/Not Resolved]
  - Confusional state [Unknown]
  - Insomnia [Unknown]
  - Abscess [Unknown]
  - Anal incontinence [Unknown]

NARRATIVE: CASE EVENT DATE: 201808
